FAERS Safety Report 21652659 (Version 2)
Quarter: 2023Q2

REPORT INFORMATION
  Report Type: Report from Study
  Country: US (occurrence: US)
  Receive Date: 20221128
  Receipt Date: 20230413
  Transmission Date: 20230721
  Serious: No
  Sender: FDA-Public Use
  Company Number: US-ABBVIE-4162751

PATIENT
  Sex: Female

DRUGS (2)
  1. HUMIRA [Suspect]
     Active Substance: ADALIMUMAB
     Indication: Rheumatoid arthritis
     Dosage: CITRATE FREE, STRENGTH:40MG, LAST ADMIN DATE:2022, ONSET DATE FOR EVENTS JOINT PAIN, UTI AND TOOT...
     Route: 058
     Dates: start: 20220424
  2. HUMIRA [Suspect]
     Active Substance: ADALIMUMAB
     Dosage: CF
     Route: 058
     Dates: start: 2023

REACTIONS (4)
  - Pneumonia [Recovered/Resolved]
  - Tooth infection [Unknown]
  - Arthralgia [Unknown]
  - Urinary tract infection [Unknown]
